FAERS Safety Report 5652234-6 (Version None)
Quarter: 2008Q1

REPORT INFORMATION
  Report Type: 
  Country: None (occurrence: None)
  Receive Date: 20080304
  Receipt Date: 20080227
  Transmission Date: 20080703
  Serious: Yes (Other)
  Sender: FDA-Public Use
  Company Number: 2008SP003266

PATIENT
  Age: 21 Year
  Sex: Male
  Weight: 62 kg

DRUGS (3)
  1. CELESTAMINE TAB [Suspect]
     Indication: TOXIC SKIN ERUPTION
     Dosage: 1 DF BID PO
     Route: 048
     Dates: start: 20080211, end: 20080213
  2. DEPAKENE [Concomitant]
  3. DIAZEPAM [Concomitant]

REACTIONS (1)
  - CONVULSION [None]
